FAERS Safety Report 18980057 (Version 1)
Quarter: 2021Q1

REPORT INFORMATION
  Report Type: Spontaneous
  Country: US (occurrence: US)
  Receive Date: 20210305
  Receipt Date: 20210305
  Transmission Date: 20210420
  Serious: Yes (Hospitalization)
  Sender: FDA-Public Use
  Company Number: None

PATIENT
  Age: 57 Year
  Sex: Female

DRUGS (19)
  1. TRAMADL/APAP [Concomitant]
  2. ADVIL [Concomitant]
     Active Substance: IBUPROFEN
  3. ANASPAZ [Concomitant]
     Active Substance: HYOSCYAMINE SULFATE
  4. FOLIC ACID. [Concomitant]
     Active Substance: FOLIC ACID
  5. MULTIVITAMIN [Concomitant]
     Active Substance: VITAMINS
  6. NORVASC [Concomitant]
     Active Substance: AMLODIPINE BESYLATE
  7. CYCLOBENZAPR [Concomitant]
     Active Substance: CYCLOBENZAPRINE
  8. FLUOCINONIDE CRE [Concomitant]
  9. GLUCOS/CHOND [Concomitant]
  10. OMEPRAZOLE. [Concomitant]
     Active Substance: OMEPRAZOLE
  11. PREMPRO [Concomitant]
     Active Substance: ESTROGENS, CONJUGATED\MEDROXYPROGESTERONE ACETATE
  12. TRIAMCINOLON CRE [Concomitant]
  13. DIAZEPAM CON [Concomitant]
  14. TALTZ [Suspect]
     Active Substance: IXEKIZUMAB
     Indication: PSORIATIC ARTHROPATHY
     Dosage: 1 PEN Q4WK SQ
     Route: 058
     Dates: start: 20200812
  15. CLARITIN CHW [Concomitant]
  16. MEDROL [Concomitant]
     Active Substance: METHYLPREDNISOLONE
  17. FUROSEMIDE. [Concomitant]
     Active Substance: FUROSEMIDE
  18. PATADAY [Concomitant]
     Active Substance: OLOPATADINE HYDROCHLORIDE
  19. PROBIOTIC [Concomitant]
     Active Substance: PROBIOTICS NOS

REACTIONS (2)
  - COVID-19 [None]
  - Product dose omission issue [None]

NARRATIVE: CASE EVENT DATE: 20210304
